FAERS Safety Report 15982308 (Version 1)
Quarter: 2019Q1

REPORT INFORMATION
  Report Type: Spontaneous
  Country: AR (occurrence: AR)
  Receive Date: 20190219
  Receipt Date: 20190219
  Transmission Date: 20190418
  Serious: Yes (Other)
  Sender: FDA-Public Use
  Company Number: AR-PFIZER INC-2019068446

PATIENT
  Age: 59 Year
  Sex: Female

DRUGS (1)
  1. IBRANCE [Suspect]
     Active Substance: PALBOCICLIB
     Indication: BREAST CANCER METASTATIC
     Dosage: 125 MG, CYCLIC (DAILY, 3X1 SCHEME)
     Dates: start: 20180215

REACTIONS (5)
  - Pain [Unknown]
  - Gait disturbance [Unknown]
  - Fatigue [Unknown]
  - Insomnia [Unknown]
  - Skin ulcer [Unknown]

NARRATIVE: CASE EVENT DATE: 201902
